FAERS Safety Report 11686814 (Version 1)
Quarter: 2015Q4

REPORT INFORMATION
  Report Type: Spontaneous
  Country: GB (occurrence: GB)
  Receive Date: 20151030
  Receipt Date: 20151030
  Transmission Date: 20160304
  Serious: Yes (Death, Hospitalization, Other)
  Sender: FDA-Public Use
  Company Number: GB-009507513-1510GBR013433

PATIENT
  Age: 46 Year
  Sex: Male

DRUGS (11)
  1. DEXAMETHASONE. [Suspect]
     Active Substance: DEXAMETHASONE
     Dosage: 4 MG, UNK
  2. NAPROXEN. [Suspect]
     Active Substance: NAPROXEN
     Dosage: UNK
     Route: 065
  3. MORPHINE [Concomitant]
     Active Substance: MORPHINE
  4. POLYETHYLENE GLYCOL 3350. [Suspect]
     Active Substance: POLYETHYLENE GLYCOL 3350
     Indication: PRODUCT USED FOR UNKNOWN INDICATION
     Dosage: UNK
     Route: 065
  5. DEXAMETHASONE. [Suspect]
     Active Substance: DEXAMETHASONE
     Indication: ROUTINE HEALTH MAINTENANCE
     Dosage: 2 MG, UNK
     Route: 065
  6. CARBOPLATIN. [Suspect]
     Active Substance: CARBOPLATIN
     Route: 065
  7. MIDAZOLAM [Concomitant]
     Active Substance: MIDAZOLAM\MIDAZOLAM HYDROCHLORIDE
     Dosage: 10 MG, UNK
     Route: 058
  8. WARFARIN SODIUM. [Concomitant]
     Active Substance: WARFARIN SODIUM
     Route: 065
  9. DIACETYLMORPHINE [Concomitant]
     Active Substance: DIACETYLMORPHINE
     Dosage: 100 MG, UNK
     Route: 058
  10. KETAMINE HYDROCHLORIDE. [Concomitant]
     Active Substance: KETAMINE HYDROCHLORIDE
     Route: 065
  11. HYDROCORTISONE. [Concomitant]
     Active Substance: HYDROCORTISONE
     Route: 042

REACTIONS (13)
  - Haemorrhage [Fatal]
  - Deep vein thrombosis [Fatal]
  - Metastases to adrenals [Fatal]
  - Hyperkalaemia [Fatal]
  - Tumour haemorrhage [Fatal]
  - Hypotension [Fatal]
  - Adrenal insufficiency [Fatal]
  - Pulmonary embolism [Fatal]
  - General physical health deterioration [Fatal]
  - Hyponatraemia [Fatal]
  - Tachycardia [Fatal]
  - Constipation [Fatal]
  - International normalised ratio abnormal [Fatal]
